FAERS Safety Report 5776493-4 (Version None)
Quarter: 2008Q2

REPORT INFORMATION
  Report Type: 
  Country: None (occurrence: None)
  Receive Date: 20080616
  Receipt Date: 20080328
  Transmission Date: 20081010
  Serious: Yes (Death)
  Sender: FDA-Public Use
  Company Number: 8031379

PATIENT
  Age: 19 Year
  Sex: Male
  Weight: 40 kg

DRUGS (9)
  1. NIFEDIPINE [Suspect]
     Dosage: 15 MG 3/D
  2. VALLERGAN [Suspect]
  3. OMEPRAZOLE [Suspect]
     Dosage: 40 MG 1/D
  4. ATROVENT [Concomitant]
  5. DOMPERIDONE [Concomitant]
  6. FLIXOTIDE [Concomitant]
  7. GAVISCON /00237601/ [Concomitant]
  8. SEREVENT [Concomitant]
  9. VENTOLIN [Concomitant]

REACTIONS (1)
  - IDIOPATHIC THROMBOCYTOPENIC PURPURA [None]
